FAERS Safety Report 20180868 (Version 1)
Quarter: 2021Q4

REPORT INFORMATION
  Report Type: Spontaneous
  Country: RU (occurrence: RU)
  Receive Date: 20211214
  Receipt Date: 20211214
  Transmission Date: 20220303
  Serious: Yes (Hospitalization)
  Sender: FDA-Public Use
  Company Number: RU-GLAXOSMITHKLINE-RU2021EME254290

PATIENT
  Sex: Female

DRUGS (1)
  1. SOTROVIMAB [Suspect]
     Active Substance: SOTROVIMAB
     Indication: COVID-19
     Dosage: UNK

REACTIONS (2)
  - Hospitalisation [Unknown]
  - Exposure during pregnancy [Unknown]
